FAERS Safety Report 5058451-0 (Version None)
Quarter: 2006Q3

REPORT INFORMATION
  Report Type: 
  Country: None (occurrence: None)
  Receive Date: 20060719
  Receipt Date: 20060707
  Transmission Date: 20061208
  Serious: Yes (Other)
  Sender: FDA-Public Use
  Company Number: CHNY2006JP01793

PATIENT
  Sex: 0

DRUGS (1)
  1. TAVEGYL [Suspect]

REACTIONS (2)
  - BLOOD DISORDER [None]
  - LEUKAEMIA [None]
